FAERS Safety Report 5256856-6 (Version None)
Quarter: 2007Q1

REPORT INFORMATION
  Report Type: 
  Country: None (occurrence: None)
  Receive Date: 20070306
  Receipt Date: 20070221
  Transmission Date: 20070707
  Serious: Yes (Hospitalization)
  Sender: FDA-Public Use
  Company Number: US-ELI_LILLY_AND_COMPANY-US200702004426

PATIENT
  Age: 79 Year
  Sex: Female

DRUGS (5)
  1. FORTEO [Suspect]
     Indication: VERTEBRAL INJURY
     Dosage: UNK D/F, UNKNOWN
     Dates: start: 20051201
  2. CALCIUM [Concomitant]
  3. DYAZIDE [Concomitant]
  4. THYROID TAB [Concomitant]
  5. VICODIN [Concomitant]

REACTIONS (5)
  - BLOOD DISORDER [None]
  - FALL [None]
  - HIP ARTHROPLASTY [None]
  - HIP FRACTURE [None]
  - PAIN IN EXTREMITY [None]
